FAERS Safety Report 18622136 (Version 1)
Quarter: 2020Q4

REPORT INFORMATION
  Report Type: Spontaneous
  Country: US (occurrence: US)
  Receive Date: 20201216
  Receipt Date: 20201216
  Transmission Date: 20210114
  Serious: Yes (Other)
  Sender: FDA-Public Use
  Company Number: US-JNJFOC-20200632919

PATIENT
  Age: 15 Month
  Sex: Male
  Weight: 11.8 kg

DRUGS (2)
  1. AVEENO UNSPECIFIED [Concomitant]
     Indication: PRODUCT USED FOR UNKNOWN INDICATION
     Route: 061
  2. NEUTROGENA BEACH DEFENSE WATER PLUS SUN PROTECTION SUNSCREEN BROAD SPECTRUM SPF30 [Suspect]
     Active Substance: AVOBENZONE\HOMOSALATE\OCTISALATE\OCTOCRYLENE\OXYBENZONE
     Indication: PRODUCT USED FOR UNKNOWN INDICATION
     Dosage: APPLIED IT LIBERALLY AND OFTEN AS DIRECTED ON INSTRUCTION LABELLED ONLY ONCE
     Route: 061
     Dates: start: 20190719, end: 20190719

REACTIONS (13)
  - Post inflammatory pigmentation change [Recovering/Resolving]
  - Dermatitis atopic [Recovering/Resolving]
  - Papule [Recovering/Resolving]
  - Otitis media acute [Recovering/Resolving]
  - Hypersensitivity [Recovering/Resolving]
  - Product container issue [Unknown]
  - Angioedema [Recovering/Resolving]
  - Nasal congestion [Recovering/Resolving]
  - Molluscum contagiosum [Recovering/Resolving]
  - Arthropod bite [Recovering/Resolving]
  - Photosensitivity reaction [Recovering/Resolving]
  - Xerosis [Recovering/Resolving]
  - Sunburn [Recovering/Resolving]

NARRATIVE: CASE EVENT DATE: 20190719
